FAERS Safety Report 7046106-2 (Version None)
Quarter: 2010Q4

REPORT INFORMATION
  Report Type: 
  Country: None (occurrence: None)
  Receive Date: 20101014
  Receipt Date: 20101001
  Transmission Date: 20110411
  Serious: Yes (Hospitalization)
  Sender: FDA-Public Use
  Company Number: FR-ABBOTT-10P-056-0657668-00

PATIENT
  Sex: Male

DRUGS (10)
  1. ENANTONE LP 11.25 MG PREP INJ [Suspect]
     Indication: PROSTATE CANCER
     Route: 050
     Dates: start: 20080101, end: 20100301
  2. EUPRESSYL [Concomitant]
     Indication: HYPERTENSION
     Route: 048
  3. AMLODIPINE [Concomitant]
     Indication: HYPERTENSION
     Route: 048
  4. ESIDRIX [Concomitant]
     Indication: HYPERTENSION
     Route: 048
  5. IKOREL [Concomitant]
     Indication: HYPERTENSION
     Route: 048
  6. CRESTOR [Concomitant]
     Indication: HYPERTRIGLYCERIDAEMIA
     Route: 048
  7. SINGULAIR [Concomitant]
     Indication: PRODUCT USED FOR UNKNOWN INDICATION
     Route: 048
  8. KARDEGIC [Concomitant]
     Indication: CORONARY ARTERY DISEASE
     Route: 048
  9. DIAMICRON [Concomitant]
     Indication: TYPE 2 DIABETES MELLITUS
     Route: 048
  10. VASTAREL [Concomitant]
     Indication: PRODUCT USED FOR UNKNOWN INDICATION
     Route: 048

REACTIONS (1)
  - ANGIOEDEMA [None]
